FAERS Safety Report 8529948-3 (Version None)
Quarter: 2012Q3

REPORT INFORMATION
  Report Type: 
  Country: None (occurrence: None)
  Receive Date: 20120723
  Receipt Date: 20120709
  Transmission Date: 20120928
  Serious: Yes (Other)
  Sender: FDA-Public Use
  Company Number: US-ASTRAZENECA-2008UW15100

PATIENT
  Sex: Female

DRUGS (6)
  1. LISINOPRIL [Concomitant]
  2. SEROQUEL [Suspect]
     Route: 048
  3. PRILOSEC [Concomitant]
  4. SEROQUEL [Suspect]
     Indication: BIPOLAR DISORDER
     Route: 048
     Dates: start: 19980101
  5. TRAZODONE HYDROCHLORIDE [Concomitant]
  6. SEROQUEL [Suspect]
     Route: 048

REACTIONS (12)
  - DIABETES MELLITUS [None]
  - PYREXIA [None]
  - RASH PRURITIC [None]
  - POLYURIA [None]
  - MUSCLE SPASMS [None]
  - HAEMATURIA [None]
  - BLOOD CREATINE PHOSPHOKINASE INCREASED [None]
  - ABDOMINAL PAIN LOWER [None]
  - DEPRESSION [None]
  - BLOOD CHOLESTEROL INCREASED [None]
  - BLADDER DISORDER [None]
  - BLADDER PAIN [None]
